FAERS Safety Report 9034567 (Version 1)
Quarter: 2013Q1

REPORT INFORMATION
  Report Type: Spontaneous
  Country: GB (occurrence: None)
  Receive Date: 20130111
  Receipt Date: 20130111
  Transmission Date: 20140127
  Serious: Yes (Other)
  Sender: FDA-Public Use
  Company Number: AUR-APL-2013-00060

PATIENT
  Age: 55 Year
  Sex: Male

DRUGS (3)
  1. RIBAVIRIN [Suspect]
     Indication: HEPATITIS C
     Route: 048
     Dates: start: 20121026
  2. INCIVO [Suspect]
     Indication: HEPATITIS C
     Route: 048
     Dates: start: 20121026
  3. INTERFERON ALFA-2B [Suspect]
     Indication: HEPATITIS C
     Dates: start: 20121026

REACTIONS (7)
  - Mood swings [None]
  - Depression [None]
  - Nausea [None]
  - Fatigue [None]
  - Influenza like illness [None]
  - Lethargy [None]
  - Vomiting [None]
